FAERS Safety Report 23694632 (Version 1)
Quarter: 2024Q2

REPORT INFORMATION
  Report Type: Report from Study
  Country: US (occurrence: US)
  Receive Date: 20240402
  Receipt Date: 20240402
  Transmission Date: 20240716
  Serious: Yes (Other)
  Sender: FDA-Public Use
  Company Number: US-ABBVIE-5688060

PATIENT
  Sex: Male
  Weight: 127 kg

DRUGS (1)
  1. HUMIRA [Suspect]
     Active Substance: ADALIMUMAB
     Indication: Psoriatic arthropathy
     Route: 058
     Dates: start: 20151024

REACTIONS (3)
  - Arthralgia [Not Recovered/Not Resolved]
  - Osteoarthritis [Unknown]
  - Cartilage atrophy [Unknown]
